FAERS Safety Report 7260762-5 (Version None)
Quarter: 2011Q1

REPORT INFORMATION
  Report Type: 
  Country: None (occurrence: None)
  Receive Date: 20110130
  Receipt Date: 20101222
  Transmission Date: 20110831
  Serious: No
  Sender: FDA-Public Use
  Company Number: US-ABBOTT-10P-163-0693488-00

PATIENT
  Age: 49 Year
  Sex: Female

DRUGS (4)
  1. SYNTHROID [Concomitant]
     Indication: THYROID DISORDER
  2. LOMOTIL [Concomitant]
     Indication: DIARRHOEA
  3. HUMIRA [Suspect]
     Indication: CROHN'S DISEASE
     Dosage: 160MG LOADING DOSE
     Dates: start: 20101208
  4. TRAZODONE HCL [Concomitant]
     Indication: INSOMNIA

REACTIONS (1)
  - INJECTION SITE PAIN [None]
